FAERS Safety Report 17674001 (Version 1)
Quarter: 2020Q2

REPORT INFORMATION
  Report Type: Spontaneous
  Country: US (occurrence: US)
  Receive Date: 20200415
  Receipt Date: 20200415
  Transmission Date: 20200714
  Serious: Yes (Other)
  Sender: FDA-Public Use
  Company Number: US-BAXTER-2020BAX007745

PATIENT
  Age: 57 Year
  Sex: Female

DRUGS (6)
  1. PREDNISONE. [Suspect]
     Active Substance: PREDNISONE
     Indication: HIGH-GRADE B-CELL LYMPHOMA
     Dosage: 4 CYCLES DA-EPOCH-R
     Route: 065
  2. VINCRISTINE [Suspect]
     Active Substance: VINCRISTINE
     Indication: HIGH-GRADE B-CELL LYMPHOMA
     Dosage: 4 CYCLES DA-EPOCH-R
     Route: 065
  3. DOXIL [Suspect]
     Active Substance: DOXORUBICIN HYDROCHLORIDE
     Indication: HIGH-GRADE B-CELL LYMPHOMA
     Dosage: 4 CYCLES DA-EPOCH-R
     Route: 065
  4. ETOPOSIDE. [Suspect]
     Active Substance: ETOPOSIDE
     Indication: HIGH-GRADE B-CELL LYMPHOMA
     Dosage: 4 CYCLES DA-EPOCH-R
     Route: 065
  5. CYCLOPHOSPHAMIDE FOR INJECTION, USP [Suspect]
     Active Substance: CYCLOPHOSPHAMIDE
     Indication: HIGH-GRADE B-CELL LYMPHOMA
     Dosage: 4 CYCLES DA-EPOCH-R
     Route: 065
  6. RITUXIMAB. [Suspect]
     Active Substance: RITUXIMAB
     Indication: HIGH-GRADE B-CELL LYMPHOMA
     Dosage: 4 CYCLES DA-EPOCH-R
     Route: 065

REACTIONS (2)
  - Febrile neutropenia [Unknown]
  - Headache [Unknown]
